FAERS Safety Report 4970369-8 (Version None)
Quarter: 2006Q2

REPORT INFORMATION
  Report Type: 
  Country: None (occurrence: None)
  Receive Date: 20060412
  Receipt Date: 20050824
  Transmission Date: 20061013
  Serious: Yes (Death)
  Sender: FDA-Public Use
  Company Number: US-GLAXOSMITHKLINE-A0571897A

PATIENT
  Age: 17 Year
  Sex: Male

DRUGS (1)
  1. SEREVENT [Suspect]
     Indication: ASTHMA
     Route: 055
     Dates: start: 19981104, end: 19991023

REACTIONS (2)
  - DRUG INEFFECTIVE [None]
  - STATUS ASTHMATICUS [None]
